FAERS Safety Report 4417248-2 (Version None)
Quarter: 2004Q3

REPORT INFORMATION
  Report Type: 
  Country: None (occurrence: None)
  Receive Date: 20040702
  Receipt Date: 20040719
  Transmission Date: 20050211
  Serious: Yes (Death)
  Sender: FDA-Public Use
  Company Number: 2004048573

PATIENT
  Age: 2 Day
  Sex: Male
  Weight: 1.134 kg

DRUGS (5)
  1. NEURONTIN [Suspect]
     Indication: EPILEPSY
     Dosage: PLACENTAL
  2. OXCARBAZEPINE (OXCARBAZEPINE) [Suspect]
     Indication: EPILEPSY
     Dosage: PLACENTAL
  3. FLUOXETINE HYDROCHLORIDE [Concomitant]
  4. NADOLOL [Concomitant]
  5. CODEINE PHOSPHATE AND ACETAMINOPHEN [Concomitant]

REACTIONS (2)
  - DEATH NEONATAL [None]
  - DRUG EXPOSURE DURING PREGNANCY [None]
